FAERS Safety Report 12354076 (Version 2)
Quarter: 2016Q2

REPORT INFORMATION
  Report Type: Report from Study
  Country: GT (occurrence: GT)
  Receive Date: 20160511
  Receipt Date: 20160524
  Transmission Date: 20160815
  Serious: Yes (Hospitalization)
  Sender: FDA-Public Use
  Company Number: PHHY2016GT064123

PATIENT
  Age: 45 Year
  Sex: Female
  Weight: 98 kg

DRUGS (3)
  1. GILENYA [Suspect]
     Active Substance: FINGOLIMOD HYDROCHLORIDE
     Indication: MULTIPLE SCLEROSIS
     Dosage: 1 DF, QD
     Route: 065
     Dates: start: 201502
  2. CARVEDILOL. [Concomitant]
     Active Substance: CARVEDILOL
     Indication: TACHYCARDIA
     Dosage: UNK
     Route: 065
  3. EFORTIL [Concomitant]
     Indication: HYPOTENSION
     Dosage: 5 MG, UNK
     Route: 065

REACTIONS (8)
  - Multiple sclerosis relapse [Unknown]
  - Chest pain [Unknown]
  - Malaise [Unknown]
  - Asthenia [Unknown]
  - Diarrhoea [Recovering/Resolving]
  - Abdominal pain upper [Recovering/Resolving]
  - Urinary tract infection [Unknown]
  - Fatigue [Unknown]

NARRATIVE: CASE EVENT DATE: 20160412
